FAERS Safety Report 10285372 (Version 4)
Quarter: 2015Q1

REPORT INFORMATION
  Report Type: Report from Study
  Country: US (occurrence: US)
  Receive Date: 20140708
  Receipt Date: 20150203
  Transmission Date: 20150720
  Serious: Yes (Hospitalization, Other)
  Sender: FDA-Public Use
  Company Number: US-ALEXION PHARMACEUTICALS INC.-A201402531

PATIENT

DRUGS (1)
  1. SOLIRIS [Suspect]
     Active Substance: ECULIZUMAB
     Indication: HAEMOLYTIC URAEMIC SYNDROME
     Dosage: 600 MG, EVERY 12 DAYS
     Route: 042
     Dates: start: 20120405, end: 20150116

REACTIONS (4)
  - Liver transplant [Recovered/Resolved]
  - Peritoneal dialysis [Unknown]
  - Renal transplant [Recovered/Resolved]
  - Speech rehabilitation [Unknown]

NARRATIVE: CASE EVENT DATE: 20140201
